FAERS Safety Report 7275474-1 (Version None)
Quarter: 2011Q1

REPORT INFORMATION
  Report Type: 
  Country: None (occurrence: None)
  Receive Date: 20110126
  Receipt Date: 20110124
  Transmission Date: 20110831
  Serious: Yes (Death)
  Sender: FDA-Public Use
  Company Number: 2010SP026142

PATIENT
  Age: 45 Year
  Sex: Male
  Weight: 73.3 kg

DRUGS (18)
  1. MAGNESIUM OXIDE [Concomitant]
  2. DOMPERIDONE [Concomitant]
  3. VALPROATE [Concomitant]
  4. TEMODAL [Suspect]
     Indication: GLIOBLASTOMA MULTIFORME
     Dosage: 140 MG; QD; PO
     Route: 048
     Dates: start: 20080923, end: 20091218
  5. IRBESARTAN [Concomitant]
  6. IBUPROFEN [Concomitant]
  7. CETIRIZINE [Concomitant]
  8. DEXAMETHASONE [Concomitant]
  9. AMLODIPINE BESYLATE [Concomitant]
  10. TRIMETHOPRIM [Concomitant]
  11. PREDNISOLONE [Concomitant]
  12. TRAMADOL [Concomitant]
  13. LYRICA [Concomitant]
  14. MEGESTROL ACETATE [Concomitant]
  15. RAMOSETRON [Concomitant]
  16. CHOLINE ALFOSCERATE [Concomitant]
  17. TOPIRAMATE [Concomitant]
  18. NORTRIPTYLINE [Concomitant]

REACTIONS (3)
  - BLOOD POTASSIUM INCREASED [None]
  - BLOOD GLUCOSE INCREASED [None]
  - METABOLIC ACIDOSIS [None]
